FAERS Safety Report 5837604-5 (Version None)
Quarter: 2008Q3

REPORT INFORMATION
  Report Type: 
  Country: None (occurrence: None)
  Receive Date: 20080807
  Receipt Date: 20080729
  Transmission Date: 20090109
  Serious: Yes (Other)
  Sender: FDA-Public Use
  Company Number: PHHY2008BR16219

PATIENT
  Sex: Male
  Weight: 74 kg

DRUGS (2)
  1. CODATEN [Suspect]
     Indication: MYALGIA
     Dosage: 50 MG, QD
     Route: 048
     Dates: start: 20080718, end: 20080718
  2. CELEBRA [Concomitant]
     Indication: BONE PAIN
     Dosage: 1 TABLET WHEN HE NEEDED
     Route: 048

REACTIONS (3)
  - BLOOD PRESSURE DECREASED [None]
  - LIP DISCOLOURATION [None]
  - TACHYCARDIA [None]
